FAERS Safety Report 5041269-2 (Version None)
Quarter: 2006Q2

REPORT INFORMATION
  Report Type: 
  Country: None (occurrence: None)
  Receive Date: 20060623
  Receipt Date: 20060616
  Transmission Date: 20061013
  Serious: Yes (Death)
  Sender: FDA-Public Use
  Company Number: USA-2006-0024388

PATIENT
  Sex: Female

DRUGS (3)
  1. OXYCODONE HYDROCHLORIDE [Suspect]
  2. ETHANOL (ETHANOL) [Suspect]
  3. NICOTINE [Suspect]

REACTIONS (5)
  - ACCIDENTAL DEATH [None]
  - ALCOHOL POISONING [None]
  - DRUG TOXICITY [None]
  - LOSS OF CONSCIOUSNESS [None]
  - VICTIM OF HOMICIDE [None]
